FAERS Safety Report 23779308 (Version 1)
Quarter: 2024Q2

REPORT INFORMATION
  Report Type: Spontaneous
  Country: JP (occurrence: None)
  Receive Date: 20240424
  Receipt Date: 20240424
  Transmission Date: 20240716
  Serious: Yes (Death, Other)
  Sender: FDA-Public Use
  Company Number: 2024A044775

PATIENT
  Age: 70 Year
  Sex: Female

DRUGS (3)
  1. IMFINZI [Suspect]
     Active Substance: DURVALUMAB
     Indication: Bile duct cancer
     Dosage: 1500.0MG UNKNOWN
     Route: 041
     Dates: start: 20230622, end: 20231124
  2. GEMCITABINE HYDROCHLORIDE [Concomitant]
     Active Substance: GEMCITABINE HYDROCHLORIDE
     Indication: Bile duct cancer
     Dosage: 1000.0MG UNKNOWN
     Dates: start: 20230622, end: 20231124
  3. CISPLATIN [Concomitant]
     Active Substance: CISPLATIN
     Indication: Bile duct cancer
     Dosage: 25.0MG UNKNOWN
     Dates: start: 20230622, end: 20231124

REACTIONS (1)
  - Cholangitis [Fatal]

NARRATIVE: CASE EVENT DATE: 20230925
